FAERS Safety Report 13409408 (Version 1)
Quarter: 2017Q2

REPORT INFORMATION
  Report Type: Spontaneous
  Country: US (occurrence: US)
  Receive Date: 20170406
  Receipt Date: 20170406
  Transmission Date: 20170830
  Serious: No
  Sender: FDA-Public Use
  Company Number: None

PATIENT
  Age: 55 Year
  Sex: Female

DRUGS (1)
  1. HEPARIN 1000 UNITS/ML, 10 ML VIAL [Suspect]
     Active Substance: HEPARIN SODIUM

REACTIONS (4)
  - Wrong technique in device usage process [None]
  - Drug effect decreased [None]
  - Wrong device used [None]
  - Laboratory test interference [None]

NARRATIVE: CASE EVENT DATE: 20170117
